FAERS Safety Report 6179046-1 (Version None)
Quarter: 2009Q2

REPORT INFORMATION
  Report Type: 
  Country: None (occurrence: None)
  Receive Date: 20090505
  Receipt Date: 20090428
  Transmission Date: 20091009
  Serious: Yes (Life-Threatening, Hospitalization)
  Sender: FDA-Public Use
  Company Number: GB-ASTRAZENECA-2002GB01418

PATIENT
  Age: 23764 Day
  Sex: Female

DRUGS (18)
  1. NOLVADEX [Suspect]
     Indication: BREAST CANCER
     Route: 048
     Dates: start: 19981223
  2. DIPROSONE [Concomitant]
     Indication: LICHEN SCLEROSUS
     Route: 061
     Dates: start: 20020410
  3. ELOCON [Concomitant]
     Indication: LICHEN SCLEROSUS
     Route: 061
     Dates: start: 20020410
  4. TACROLIMUS [Concomitant]
     Indication: PROPHYLAXIS
     Dates: start: 20020410
  5. TACROLIMUS [Concomitant]
     Indication: IMMUNOSUPPRESSION
     Dates: start: 20020410
  6. MYCOPHENOLATE MOFETIL [Concomitant]
     Indication: PROPHYLAXIS
     Route: 048
     Dates: start: 20020410
  7. MYCOPHENOLATE MOFETIL [Concomitant]
     Indication: IMMUNOSUPPRESSION
     Route: 048
     Dates: start: 20020410
  8. SENNA [Concomitant]
     Route: 048
     Dates: start: 20010901
  9. PARACETAMOL [Concomitant]
     Route: 048
  10. ATENOLOL [Concomitant]
     Route: 048
     Dates: start: 20020312
  11. LEVOTHYROXINE SODIUM [Concomitant]
     Dosage: PRE-STUDY
     Route: 048
  12. CLONIDINE [Concomitant]
     Route: 048
     Dates: start: 20001001
  13. TOLTERODINE [Concomitant]
     Route: 048
     Dates: start: 20011220
  14. FLUOXETINE [Concomitant]
     Route: 048
     Dates: start: 20011220
  15. MINOCYCLINE HCL [Concomitant]
     Route: 048
     Dates: start: 20011220
  16. LANSOPRAZOLE [Concomitant]
     Route: 048
     Dates: start: 20020501
  17. ONDANSETRON [Concomitant]
     Route: 048
     Dates: start: 20020501
  18. DERMOVATE OINTMENT [Concomitant]
     Dosage: PRE-STUDY
     Route: 061

REACTIONS (2)
  - CELLULITIS [None]
  - DEEP VEIN THROMBOSIS [None]
